FAERS Safety Report 8111978-7 (Version None)
Quarter: 2012Q1

REPORT INFORMATION
  Report Type: 
  Country: None (occurrence: None)
  Receive Date: 20120203
  Receipt Date: 20120124
  Transmission Date: 20120608
  Serious: Yes (Life-Threatening, Hospitalization)
  Sender: FDA-Public Use
  Company Number: US-JNJFOC-20120111500

PATIENT
  Age: 53 Year
  Sex: Male

DRUGS (2)
  1. CYCLOBENZAPRINE [Suspect]
     Indication: BACK PAIN
     Route: 065
  2. ACETAMINOPHEN AND HYDROCODONE BITARTRATE [Suspect]
     Indication: BACK PAIN

REACTIONS (1)
  - NEUROLEPTIC MALIGNANT SYNDROME [None]
